FAERS Safety Report 11233569 (Version 1)
Quarter: 2015Q3

REPORT INFORMATION
  Report Type: Spontaneous
  Country: FR (occurrence: FR)
  Receive Date: 20150702
  Receipt Date: 20150702
  Transmission Date: 20151125
  Serious: Yes (Other)
  Sender: FDA-Public Use
  Company Number: FR-CIPLA LTD.-2015FR05136

PATIENT

DRUGS (8)
  1. PACLITAXEL. [Suspect]
     Active Substance: PACLITAXEL
     Indication: GERM CELL CANCER
     Dosage: 250 MG/M2 IN A 3-H INFUSION, ADMINISTERED ON DAYS 1 AND 15
  2. IFOSFAMIDE. [Suspect]
     Active Substance: IFOSFAMIDE
     Indication: GERM CELL CANCER
     Dosage: 2400 MG/M2/DAY IN A 3-H INFUSION, FOR 5 DAYS- TOTAL DOSE OF 12,000 MG/M2
  3. SODIUM MERCAPTOETHANESULFONATE [Concomitant]
     Route: 065
  4. PACLITAXEL. [Suspect]
     Active Substance: PACLITAXEL
     Dosage: 360 MG/M2 (CONTINUOUS INFUSION, 120 MG/M2/DAY FOR 3 DAYS)
  5. THIOTEPA. [Suspect]
     Active Substance: THIOTEPA
     Indication: GERM CELL CANCER
     Dosage: 720 MG/M2; 6-H INFUSION, 240 MG/M2/DAY
  6. CARBOPLATIN. [Suspect]
     Active Substance: CARBOPLATIN
     Indication: GERM CELL CANCER
     Dosage: AREA UNDER THE CURVE (AUC) 4/DAY, IN A 6-H INFUSION, FOR 5 DAYS - TOTAL DOSE OF AUC 20
  7. ETOPOSIDE. [Suspect]
     Active Substance: ETOPOSIDE
     Indication: GERM CELL CANCER
     Dosage: 150 MG/M2 TWICE A DAY, IN A 2-H INFUSION, FOR 5 DAYS- TOTAL DOSE OF 1500 MG/M2
  8. EPIRUBICIN [Suspect]
     Active Substance: EPIRUBICIN
     Indication: GERM CELL CANCER
     Dosage: 100 MG/M2 IN A 3-H INFUSION, ADMINISTERED ON DAYS 1 AND 15

REACTIONS (2)
  - Disease progression [Unknown]
  - Disease recurrence [Unknown]
